FAERS Safety Report 13865019 (Version 2)
Quarter: 2017Q4

REPORT INFORMATION
  Report Type: Spontaneous
  Country: GB (occurrence: GB)
  Receive Date: 20170814
  Receipt Date: 20171010
  Transmission Date: 20180320
  Serious: Yes (Death, Other)
  Sender: FDA-Public Use
  Company Number: GB-TEVA-794818ACC

PATIENT
  Age: 53 Year
  Sex: Male

DRUGS (6)
  1. TAMSULOSIN [Concomitant]
     Active Substance: TAMSULOSIN
     Dates: start: 20130909, end: 20151106
  2. ALFUZOSIN [Concomitant]
     Active Substance: ALFUZOSIN
     Indication: HYPOTONIC URINARY BLADDER
     Dates: start: 20160706
  3. SILDENAFIL. [Concomitant]
     Active Substance: SILDENAFIL
     Indication: ERECTILE DYSFUNCTION
  4. ERYTHROMYCIN. [Suspect]
     Active Substance: ERYTHROMYCIN
     Indication: OTITIS MEDIA
     Dosage: 1000 MILLIGRAM DAILY;
     Route: 048
     Dates: start: 20170511, end: 20170511
  5. ZAPAIN [Concomitant]
     Active Substance: ACETAMINOPHEN\CODEINE PHOSPHATE
     Dosage: 30/500?
  6. COCODAMOL [Concomitant]
     Active Substance: ACETAMINOPHEN\CODEINE PHOSPHATE

REACTIONS (2)
  - Cardiac arrest [Not Recovered/Not Resolved]
  - Anaphylactic reaction [Fatal]

NARRATIVE: CASE EVENT DATE: 20170511
